FAERS Safety Report 21940255 (Version 1)
Quarter: 2023Q1

REPORT INFORMATION
  Report Type: Report from Study
  Country: US (occurrence: US)
  Receive Date: 20230201
  Receipt Date: 20230201
  Transmission Date: 20230417
  Serious: No
  Sender: FDA-Public Use
  Company Number: US-EXELIXIS-CABO-22050157

PATIENT
  Age: 59 Year
  Sex: Male

DRUGS (4)
  1. CABOMETYX [Suspect]
     Active Substance: CABOZANTINIB S-MALATE
     Indication: Renal cancer
     Dosage: 60 MG, QD
     Route: 048
     Dates: start: 202201
  2. CABOMETYX [Suspect]
     Active Substance: CABOZANTINIB S-MALATE
     Dosage: 40 MG, QD (TAKE TWO 20 MG TABLETS BY MOUTH DAILY)
     Route: 048
     Dates: start: 20220302
  3. CABOMETYX [Suspect]
     Active Substance: CABOZANTINIB S-MALATE
     Dosage: 60 MG
     Route: 048
  4. CABOMETYX [Suspect]
     Active Substance: CABOZANTINIB S-MALATE
     Dosage: 80 MG
     Route: 048

REACTIONS (26)
  - Skin fissures [Unknown]
  - Hypotonia [Unknown]
  - Skin lesion [Unknown]
  - Thyroid disorder [Recovered/Resolved]
  - Diabetic foot [Not Recovered/Not Resolved]
  - Malaise [Unknown]
  - Renal disorder [Unknown]
  - Swelling [Unknown]
  - Red blood cell count decreased [Unknown]
  - Anion gap decreased [Unknown]
  - Protein total decreased [Unknown]
  - Blood bilirubin abnormal [Unknown]
  - Pulmonary mass [Not Recovered/Not Resolved]
  - SARS-CoV-2 test positive [Unknown]
  - Rash macular [Recovering/Resolving]
  - Blood glucose increased [Unknown]
  - Skin haemorrhage [Unknown]
  - Dry skin [Unknown]
  - Weight decreased [Recovering/Resolving]
  - Hepatic enzyme increased [Not Recovered/Not Resolved]
  - Blood pressure increased [Not Recovered/Not Resolved]
  - Platelet count decreased [Unknown]
  - Blood calcium decreased [Unknown]
  - Haemoglobin decreased [Unknown]
  - Blood sodium decreased [Unknown]
  - Overdose [Unknown]

NARRATIVE: CASE EVENT DATE: 20220411
